FAERS Safety Report 10073128 (Version 1)
Quarter: 2014Q2

REPORT INFORMATION
  Report Type: Spontaneous
  Country: CZ (occurrence: CZ)
  Receive Date: 20140411
  Receipt Date: 20140411
  Transmission Date: 20141212
  Serious: Yes (Hospitalization)
  Sender: FDA-Public Use
  Company Number: CZ-INCYTE CORPORATION-2014IN000980

PATIENT
  Sex: Male

DRUGS (1)
  1. JAKAVI [Suspect]
     Indication: SPLENOMEGALY
     Dosage: UNK UNK, UNK
     Dates: start: 201308

REACTIONS (2)
  - Pneumonia [Unknown]
  - Haemorrhage [Unknown]
